FAERS Safety Report 14863482 (Version 1)
Quarter: 2018Q2

REPORT INFORMATION
  Report Type: Spontaneous
  Country: US (occurrence: US)
  Receive Date: 20180508
  Receipt Date: 20180508
  Transmission Date: 20180711
  Serious: No
  Sender: FDA-Public Use
  Company Number: US-ALKERMES INC.-ALK-2017-002847

PATIENT
  Age: 25 Year
  Sex: Male
  Weight: 83.9 kg

DRUGS (2)
  1. PROZAC [Concomitant]
     Active Substance: FLUOXETINE HYDROCHLORIDE
     Indication: PRODUCT USED FOR UNKNOWN INDICATION
     Dosage: UNK
     Route: 065
  2. VIVITROL [Suspect]
     Active Substance: NALTREXONE
     Indication: DRUG DEPENDENCE
     Dosage: 380 MG, QMO
     Dates: start: 20170613

REACTIONS (7)
  - Weight increased [Unknown]
  - Therapeutic response shortened [Unknown]
  - Anger [Recovering/Resolving]
  - Irritability [Recovering/Resolving]
  - Personality disorder [Recovering/Resolving]
  - Mood altered [Recovering/Resolving]
  - Partner stress [Unknown]

NARRATIVE: CASE EVENT DATE: 201706
